FAERS Safety Report 9083269 (Version 2)
Quarter: 2013Q2

REPORT INFORMATION
  Report Type: Report from Study
  Country: US (occurrence: US)
  Receive Date: 20130131
  Receipt Date: 20130501
  Transmission Date: 20140414
  Serious: Yes (Other)
  Sender: FDA-Public Use
  Company Number: US-ABBOTT-12P-163-0989495-00

PATIENT
  Age: 60 Year
  Sex: Female
  Weight: 67.65 kg

DRUGS (10)
  1. HUMIRA [Suspect]
     Indication: RHEUMATOID ARTHRITIS
     Route: 058
     Dates: start: 201204, end: 201302
  2. HUMIRA [Suspect]
     Route: 058
  3. NAPROXEN [Suspect]
     Indication: SWELLING
     Dosage: 500MG - 2 IN AM, 2 IN PM
  4. SULFASALAZINE [Concomitant]
     Indication: RHEUMATOID ARTHRITIS
     Dosage: 500 MG, (3) TWICE DAILY
  5. SULFASALAZINE [Concomitant]
     Indication: ARTHRITIS
  6. ALPRAZOLAM [Concomitant]
     Indication: ANXIETY
     Dosage: 2 MG - 1/2 IN THE MORNING AND 2 AT NIGHT
  7. VICODIN [Concomitant]
     Indication: ARTHRALGIA
  8. SEROQUEL [Concomitant]
     Indication: BIPOLAR DISORDER
  9. SEROQUEL [Concomitant]
     Indication: DEPRESSION
  10. XANAX [Concomitant]
     Indication: ANXIETY

REACTIONS (22)
  - Bone erosion [Recovering/Resolving]
  - Exostosis [Recovered/Resolved]
  - Foot fracture [Recovered/Resolved]
  - Pain in extremity [Recovering/Resolving]
  - Oedema peripheral [Recovering/Resolving]
  - Impaired healing [Recovered/Resolved]
  - Bone disorder [Not Recovered/Not Resolved]
  - Hunger [Not Recovered/Not Resolved]
  - Mobility decreased [Not Recovered/Not Resolved]
  - Injection site swelling [Not Recovered/Not Resolved]
  - Injection site erythema [Not Recovered/Not Resolved]
  - Injection site pruritus [Not Recovered/Not Resolved]
  - Injection site warmth [Not Recovered/Not Resolved]
  - Injection site pain [Not Recovered/Not Resolved]
  - Injection site mass [Not Recovered/Not Resolved]
  - Incorrect route of drug administration [Not Recovered/Not Resolved]
  - Injection site haemorrhage [Not Recovered/Not Resolved]
  - Injection site haemorrhage [Not Recovered/Not Resolved]
  - Weight increased [Not Recovered/Not Resolved]
  - Mobility decreased [Recovering/Resolving]
  - Device failure [Unknown]
  - Arthritis [Unknown]
